FAERS Safety Report 8967768 (Version 1)
Quarter: 2012Q4

REPORT INFORMATION
  Report Type: 
  Country: BR (occurrence: BR)
  Receive Date: 20121218
  Receipt Date: 20121218
  Transmission Date: 20130627
  Serious: Yes (Death, Hospitalization)
  Sender: FDA-Public Use
  Company Number: PHHY2012BR115541

PATIENT
  Age: 72 Year
  Sex: Female

DRUGS (1)
  1. TRILEPTAL [Suspect]
     Indication: CONVULSION
     Dosage: 1 DF (twice a day 08.00 AM and 08.00 PM), BID
     Route: 048

REACTIONS (5)
  - Brain malformation [Fatal]
  - Abnormal behaviour [Fatal]
  - Hypokinesia [Fatal]
  - Speech disorder [Fatal]
  - Convulsion [Fatal]
